FAERS Safety Report 14340170 (Version 1)
Quarter: 2017Q4

REPORT INFORMATION
  Report Type: Report from Study
  Country: None (occurrence: CO)
  Receive Date: 20171231
  Receipt Date: 20171231
  Transmission Date: 20180321
  Serious: Yes (Other)
  Sender: FDA-Public Use
  Company Number: CO-ABBVIE-17K-036-2207988-00

PATIENT
  Age: 53 Year
  Sex: Female

DRUGS (1)
  1. HUMIRA [Suspect]
     Active Substance: ADALIMUMAB
     Indication: ANKYLOSING SPONDYLITIS
     Route: 058
     Dates: start: 20110331, end: 20171127

REACTIONS (8)
  - Dysuria [Not Recovered/Not Resolved]
  - Crohn^s disease [Not Recovered/Not Resolved]
  - Procedural complication [Unknown]
  - Post procedural inflammation [Not Recovered/Not Resolved]
  - Post procedural diarrhoea [Not Recovered/Not Resolved]
  - Procedural vomiting [Not Recovered/Not Resolved]
  - Gastrointestinal tract adenoma [Not Recovered/Not Resolved]
  - Procedural hypotension [Not Recovered/Not Resolved]

NARRATIVE: CASE EVENT DATE: 20171227
